FAERS Safety Report 6576823-X (Version None)
Quarter: 2010Q1

REPORT INFORMATION
  Report Type: 
  Country: None (occurrence: None)
  Receive Date: 20100210
  Receipt Date: 20100203
  Transmission Date: 20100710
  Serious: Yes (Death)
  Sender: FDA-Public Use
  Company Number: FR-SANOFI-AVENTIS-2010SA006833

PATIENT
  Age: 66 Year
  Sex: Female

DRUGS (1)
  1. LANTUS [Suspect]
     Route: 058

REACTIONS (1)
  - PANCREATIC CARCINOMA [None]
